FAERS Safety Report 5226917-6 (Version None)
Quarter: 2007Q1

REPORT INFORMATION
  Report Type: 
  Country: None (occurrence: None)
  Receive Date: 20070201
  Receipt Date: 20070201
  Transmission Date: 20070707
  Serious: Yes (Other)
  Sender: FDA-Public Use
  Company Number: None

PATIENT
  Sex: Female
  Weight: 57.1532 kg

DRUGS (4)
  1. DIAZEPAM [Suspect]
     Indication: ANXIETY
     Dosage: 5 MG BID 047
     Dates: start: 20051211
  2. DIAZEPAM [Suspect]
     Indication: DEPRESSION
     Dosage: 5 MG BID 047
     Dates: start: 20051211
  3. DIAZEPAM [Suspect]
     Indication: ANXIETY
     Dosage: 5 MG BID 047
     Dates: start: 20060311
  4. DIAZEPAM [Suspect]
     Indication: DEPRESSION
     Dosage: 5 MG BID 047
     Dates: start: 20060311

REACTIONS (3)
  - INSOMNIA [None]
  - NERVOUSNESS [None]
  - PSYCHOMOTOR HYPERACTIVITY [None]
